FAERS Safety Report 5022778-9 (Version None)
Quarter: 2006Q2

REPORT INFORMATION
  Report Type: 
  Country: None (occurrence: None)
  Receive Date: 20060609
  Receipt Date: 20060605
  Transmission Date: 20061013
  Serious: Yes (Other)
  Sender: FDA-Public Use
  Company Number: JP-MERCK-0606USA00797

PATIENT
  Age: 48 Year
  Sex: Male

DRUGS (3)
  1. COZAAR [Suspect]
     Route: 048
  2. BENIDIPINE [Concomitant]
     Route: 048
  3. TEMOCAPRIL HYDROCHLORIDE [Concomitant]
     Route: 048

REACTIONS (2)
  - FOCAL GLOMERULOSCLEROSIS [None]
  - RENOVASCULAR HYPERTENSION [None]
